FAERS Safety Report 7548263-8 (Version None)
Quarter: 2011Q2

REPORT INFORMATION
  Report Type: 
  Country: None (occurrence: None)
  Receive Date: 20110615
  Receipt Date: 20110609
  Transmission Date: 20111010
  Serious: No
  Sender: FDA-Public Use
  Company Number: US-PFIZER INC-2011126865

PATIENT
  Sex: Female
  Weight: 136.5 kg

DRUGS (19)
  1. ATENOLOL [Concomitant]
     Indication: HYPERTENSION
     Dosage: 50 MG, DAILY
  2. CYMBALTA [Concomitant]
     Indication: DEPRESSED MOOD
     Dosage: 60 MG, DAILY
  3. MECLIZINE [Concomitant]
     Indication: BALANCE DISORDER
     Dosage: 25 MG, 3X/DAY
  4. CHANTIX [Suspect]
     Indication: SMOKING CESSATION THERAPY
     Dosage: 0.5 MG, 1X/DAY
     Route: 048
     Dates: start: 20100401, end: 20100101
  5. CHANTIX [Suspect]
     Dosage: 1 MG, 2X/DAY
     Route: 048
     Dates: start: 20100101
  6. TORSEMIDE [Concomitant]
     Indication: HYPERTENSION
     Dosage: 100 MG, 2X/DAY
  7. ZYRTEC [Concomitant]
     Indication: HYPERSENSITIVITY
     Dosage: 10 MG, DAILY
  8. SYNTHROID [Concomitant]
     Indication: HYPOTHYROIDISM
     Dosage: 100 MG, DAILY
  9. KLOR-CON [Concomitant]
     Indication: HYPERTENSION
     Dosage: 10 MEQ, 3X/DAY
  10. ESTRADIOL [Concomitant]
     Indication: HORMONE REPLACEMENT THERAPY
     Dosage: 1 MG, DAILY
  11. SPIRIVA [Concomitant]
     Indication: CHRONIC OBSTRUCTIVE PULMONARY DISEASE
     Dosage: UNK, DAILY
  12. COMBIVENT [Concomitant]
     Indication: CHRONIC OBSTRUCTIVE PULMONARY DISEASE
     Dosage: UNK, 4X/DAY
  13. SIMVASTATIN [Concomitant]
     Indication: HYPERLIPIDAEMIA
     Dosage: 40 MG, DAILY
  14. GABAPENTIN [Concomitant]
     Indication: PAIN
     Dosage: 600 MG, 3X/DAY
  15. SYMBICORT [Concomitant]
     Indication: CHRONIC OBSTRUCTIVE PULMONARY DISEASE
     Dosage: UNK, DAILY
  16. LISINOPRIL [Concomitant]
     Indication: HYPERTENSION
     Dosage: 20 MG, DAILY
  17. TAGAMET [Concomitant]
     Indication: GASTROOESOPHAGEAL REFLUX DISEASE
     Dosage: 400 MG, 2X/DAY
  18. GLYBURIDE [Concomitant]
     Indication: DIABETES MELLITUS
     Dosage: 1 MG, DAILY
  19. ABILIFY [Concomitant]
     Indication: DEPRESSED MOOD
     Dosage: 5 MG, DAILY

REACTIONS (2)
  - NIGHTMARE [None]
  - SLEEP DISORDER [None]
